FAERS Safety Report 21693006 (Version 1)
Quarter: 2022Q4

REPORT INFORMATION
  Report Type: Spontaneous
  Country: US (occurrence: US)
  Receive Date: 20221207
  Receipt Date: 20221207
  Transmission Date: 20230113
  Serious: Yes (Other)
  Sender: FDA-Public Use
  Company Number: US-SAMSUNG BIOEPIS-SB-2022-30811

PATIENT
  Age: 27 Year
  Sex: Female

DRUGS (1)
  1. INFLIXIMAB [Suspect]
     Active Substance: INFLIXIMAB
     Indication: Crohn^s disease
     Dosage: UNKNOWN
     Route: 065

REACTIONS (8)
  - IgA nephropathy [Unknown]
  - Conjunctivitis allergic [Recovered/Resolved]
  - Asthma [Recovered/Resolved]
  - Erythema nodosum [Recovered/Resolved]
  - Hereditary motor and sensory neuropathy [Unknown]
  - Psoriasis [Unknown]
  - COVID-19 [Unknown]
  - Sinusitis [Recovering/Resolving]

NARRATIVE: CASE EVENT DATE: 20210601
